FAERS Safety Report 14355438 (Version 1)
Quarter: 2018Q1

REPORT INFORMATION
  Report Type: Spontaneous
  Country: JP (occurrence: JP)
  Receive Date: 20180105
  Receipt Date: 20180105
  Transmission Date: 20180509
  Serious: Yes (Death, Hospitalization)
  Sender: FDA-Public Use
  Company Number: JP-BAYER-2017-204421

PATIENT
  Age: 73 Year
  Sex: Male

DRUGS (9)
  1. SPIRONOLACTONE. [Concomitant]
     Active Substance: SPIRONOLACTONE
     Dosage: 25 MG, QD
     Route: 048
  2. RIZE [Concomitant]
     Active Substance: CLOTIAZEPAM
     Dosage: DAILY DOSE 5 MG
     Route: 048
  3. URSO [Concomitant]
     Active Substance: URSODIOL
     Dosage: DAILY DOSE 600 MG
     Route: 048
  4. NEXAVAR [Suspect]
     Active Substance: SORAFENIB
     Indication: HEPATOCELLULAR CARCINOMA
     Dosage: DAILY DOSE 400 MG
     Route: 048
     Dates: start: 20170415, end: 20170425
  5. BROTIZOLAM [Concomitant]
     Active Substance: BROTIZOLAM
     Dosage: 0.25 MG, QD
     Route: 048
  6. FUROSEMIDE. [Concomitant]
     Active Substance: FUROSEMIDE
     Dosage: 20 MG, QD
     Route: 048
  7. VILDAGLIPTIN [Concomitant]
     Active Substance: VILDAGLIPTIN
     Dosage: DAILY DOSE 100 MG
     Route: 048
     Dates: end: 20171030
  8. LIVACT [Concomitant]
     Active Substance: AMINO ACIDS
     Dosage: DAILY DOSE 12.45 G
     Route: 048
  9. NEXIUM [Concomitant]
     Active Substance: ESOMEPRAZOLE MAGNESIUM
     Dosage: 20 MG, QD
     Route: 048

REACTIONS (7)
  - Blood bilirubin increased [Not Recovered/Not Resolved]
  - Jaundice [Recovered/Resolved]
  - Hepatic function abnormal [Not Recovered/Not Resolved]
  - Ascites [Unknown]
  - Liver disorder [Recovered/Resolved]
  - Decreased appetite [Recovered/Resolved]
  - Hepatic failure [Fatal]

NARRATIVE: CASE EVENT DATE: 201704
